FAERS Safety Report 25286015 (Version 1)
Quarter: 2025Q2

REPORT INFORMATION
  Report Type: Spontaneous
  Country: RO (occurrence: RO)
  Receive Date: 20250509
  Receipt Date: 20250509
  Transmission Date: 20250717
  Serious: Yes (Other)
  Sender: SANDOZ
  Company Number: RO-BRISTOL-MYERS SQUIBB COMPANY-2025-054353

PATIENT
  Age: 44 Year
  Sex: Male
  Weight: 87 kg

DRUGS (10)
  1. CARBOPLATIN [Suspect]
     Active Substance: CARBOPLATIN
     Indication: Lung neoplasm
     Route: 065
     Dates: start: 20240430
  2. CARBOPLATIN [Suspect]
     Active Substance: CARBOPLATIN
     Indication: Bronchial neoplasm
  3. OPDIVO [Suspect]
     Active Substance: NIVOLUMAB
     Indication: Bronchial neoplasm
     Dosage: 2 CYCLES
     Route: 065
     Dates: start: 20240430
  4. OPDIVO [Suspect]
     Active Substance: NIVOLUMAB
     Indication: Lung neoplasm
  5. PEMETREXED [Suspect]
     Active Substance: PEMETREXED
     Indication: Bronchial neoplasm
     Dosage: DOSE: 500 MG/ML Q3W (21 DAYS)
     Route: 065
  6. PEMETREXED [Suspect]
     Active Substance: PEMETREXED
     Indication: Lung neoplasm
  7. YERVOY [Suspect]
     Active Substance: IPILIMUMAB
     Indication: Bronchial neoplasm
     Route: 065
     Dates: start: 20240430
  8. YERVOY [Suspect]
     Active Substance: IPILIMUMAB
     Indication: Lung neoplasm
  9. ZOLEDRONIC ACID [Suspect]
     Active Substance: ZOLEDRONIC ACID
     Indication: Bronchial neoplasm
     Route: 065
     Dates: start: 20240430
  10. ZOLEDRONIC ACID [Suspect]
     Active Substance: ZOLEDRONIC ACID
     Indication: Lung neoplasm

REACTIONS (15)
  - Neutropenia [Unknown]
  - Pericardial effusion [Unknown]
  - Hypothyroidism [Unknown]
  - Osteolysis [Unknown]
  - Pruritus [Unknown]
  - Decreased appetite [Unknown]
  - Nausea [Unknown]
  - Anaemia [Unknown]
  - Diarrhoea [Unknown]
  - Asthenia [Unknown]
  - Rash [Unknown]
  - Fatigue [Unknown]
  - Vomiting [Unknown]
  - Constipation [Unknown]
  - Bone pain [Unknown]

NARRATIVE: CASE EVENT DATE: 20240524
